FAERS Safety Report 13974704 (Version 5)
Quarter: 2018Q3

REPORT INFORMATION
  Report Type: Spontaneous
  Country: JP (occurrence: JP)
  Receive Date: 20170915
  Receipt Date: 20180711
  Transmission Date: 20181010
  Serious: Yes (Death, Life-Threatening, Hospitalization, Other)
  Sender: FDA-Public Use
  Company Number: JP-BAYER-2017-142881

PATIENT
  Age: 65 Year
  Sex: Male
  Weight: 39 kg

DRUGS (19)
  1. LEUPLIN [Concomitant]
     Active Substance: LEUPROLIDE ACETATE
     Indication: PROSTATE CANCER STAGE IV
     Dosage: ONCE IN 3 MONTHS
     Route: 058
  2. HEPARIN CALCIUM [Concomitant]
     Active Substance: HEPARIN CALCIUM
     Dosage: UNK
     Route: 058
     Dates: start: 201605
  3. XTANDI [Concomitant]
     Active Substance: ENZALUTAMIDE
     Indication: PROSTATE CANCER STAGE IV
     Dosage: 1 DF, QD
     Route: 048
     Dates: start: 201705, end: 201708
  4. HEPARIN CA [Concomitant]
     Indication: DISSEMINATED INTRAVASCULAR COAGULATION
     Dosage: UNK
     Route: 058
     Dates: start: 20170621
  5. PREDONINE [Concomitant]
     Active Substance: PREDNISOLONE
     Dosage: DAILY DOSE 10 MG
     Route: 048
     Dates: start: 20161019
  6. CALONAL [Concomitant]
     Active Substance: ACETAMINOPHEN
     Dosage: DAILY DOSE 900 MG
     Route: 048
     Dates: start: 201705
  7. BROTIZOLAM [Concomitant]
     Active Substance: BROTIZOLAM
  8. CEFTRIAXONE. [Concomitant]
     Active Substance: CEFTRIAXONE
     Indication: DISSEMINATED INTRAVASCULAR COAGULATION
     Dosage: DAILY DOSE 2 G
     Route: 042
     Dates: start: 20170421, end: 20170526
  9. NEXIUM [Concomitant]
     Active Substance: ESOMEPRAZOLE MAGNESIUM
     Dosage: DAILY DOSE 1 DF
     Route: 048
     Dates: start: 201610, end: 201708
  10. EDIROL [Concomitant]
     Active Substance: ELDECALCITOL
  11. LEUPLIN [Concomitant]
     Active Substance: LEUPROLIDE ACETATE
  12. XOFIGO [Suspect]
     Active Substance: RADIUM RA-223 DICHLORIDE
     Indication: METASTASES TO BONE
     Dosage: 55 KBQ, ONCE
     Route: 041
     Dates: start: 20170609, end: 20170609
  13. ELIETEN [Concomitant]
     Active Substance: METOCLOPRAMIDE
     Dosage: DAILY DOSE 3 DF
     Route: 048
     Dates: start: 201705, end: 201708
  14. XOFIGO [Suspect]
     Active Substance: RADIUM RA-223 DICHLORIDE
     Indication: PROSTATE CANCER STAGE IV
     Dosage: 55 KBQ, ONCE
     Route: 041
     Dates: start: 20170512, end: 20170512
  15. TAPENTADOL HYDROCHLORIDE [Concomitant]
     Active Substance: TAPENTADOL HYDROCHLORIDE
     Dosage: DAILY DOSE 500 MG
     Route: 048
     Dates: start: 201706
  16. ADJUST?A [Concomitant]
     Active Substance: SENNA LEAF\SENNOSIDES\SENNOSIDES A AND B
  17. ZOLEDRONIC ACID [Concomitant]
     Active Substance: ZOLEDRONIC ACID
  18. ACETAMINOPHEN. [Concomitant]
     Active Substance: ACETAMINOPHEN
     Indication: DISSEMINATED INTRAVASCULAR COAGULATION
     Dosage: 1000 MG, AT THE TIME OF PYREXIA
     Route: 042
  19. HEPARIN CA [Concomitant]
     Indication: DISSEMINATED INTRAVASCULAR COAGULATION
     Dosage: UNK
     Dates: start: 20170428, end: 20170620

REACTIONS (9)
  - Platelet count decreased [Not Recovered/Not Resolved]
  - Malaise [None]
  - Product use issue [None]
  - Pancytopenia [Fatal]
  - Haemoglobin decreased [Not Recovered/Not Resolved]
  - Prostate cancer [Fatal]
  - Haemorrhagic cerebral infarction [Not Recovered/Not Resolved]
  - Bone marrow failure [Not Recovered/Not Resolved]
  - Anaemia [Not Recovered/Not Resolved]

NARRATIVE: CASE EVENT DATE: 20170601
